FAERS Safety Report 5832142-8 (Version None)
Quarter: 2008Q3

REPORT INFORMATION
  Report Type: 
  Country: None (occurrence: None)
  Receive Date: 20080804
  Receipt Date: 20080728
  Transmission Date: 20090109
  Serious: Yes (Hospitalization, Other)
  Sender: FDA-Public Use
  Company Number: JP-BAYER-200811678BYL

PATIENT
  Age: 72 Year
  Sex: Female
  Weight: 39 kg

DRUGS (32)
  1. NEXAVAR [Suspect]
     Indication: RENAL CELL CARCINOMA STAGE IV
     Dosage: TOTAL DAILY DOSE: 800 MG  UNIT DOSE: 200 MG
     Route: 048
     Dates: start: 20080617, end: 20080630
  2. NEXAVAR [Suspect]
     Dosage: UNIT DOSE: 200 MG
     Route: 048
     Dates: start: 20080717, end: 20080725
  3. MAGMITT [Concomitant]
     Indication: DRUG USE FOR UNKNOWN INDICATION
     Dosage: TOTAL DAILY DOSE: 1980 MG  UNIT DOSE: 330 MG
     Route: 048
     Dates: start: 20080615, end: 20080701
  4. BIO-THREE [Concomitant]
     Indication: DRUG USE FOR UNKNOWN INDICATION
     Route: 048
     Dates: start: 20080615, end: 20080701
  5. DAI-KENCHU-TO [Concomitant]
     Indication: DRUG USE FOR UNKNOWN INDICATION
     Dosage: TOTAL DAILY DOSE: 7.5 G  UNIT DOSE: 2.5 G
     Route: 048
     Dates: start: 20080615, end: 20080701
  6. MECOBALAMIN [Concomitant]
     Indication: DRUG USE FOR UNKNOWN INDICATION
     Dosage: TOTAL DAILY DOSE: 1500 ?G  UNIT DOSE: 500 ?G
     Route: 048
     Dates: start: 20080615, end: 20080701
  7. FAMOTIDINE [Concomitant]
     Indication: DRUG USE FOR UNKNOWN INDICATION
     Dosage: TOTAL DAILY DOSE: 20 MG  UNIT DOSE: 10 MG
     Route: 048
     Dates: start: 20080615, end: 20080701
  8. ALLEGRA [Concomitant]
     Indication: DRUG USE FOR UNKNOWN INDICATION
     Dosage: TOTAL DAILY DOSE: 120 MG  UNIT DOSE: 60 MG
     Route: 048
     Dates: start: 20080615, end: 20080701
  9. SENNARIDE [Concomitant]
     Indication: DRUG USE FOR UNKNOWN INDICATION
     Route: 048
     Dates: start: 20080615, end: 20080701
  10. NAUZELIN [Concomitant]
     Indication: DRUG USE FOR UNKNOWN INDICATION
     Dosage: TOTAL DAILY DOSE: 15 MG  UNIT DOSE: 5 MG
     Route: 048
     Dates: start: 20080615, end: 20080701
  11. AMOBAN [Concomitant]
     Indication: DRUG USE FOR UNKNOWN INDICATION
     Dosage: UNIT DOSE: 7.5 MG
     Route: 048
     Dates: start: 20080615, end: 20080714
  12. AMOBAN [Concomitant]
     Dosage: UNIT DOSE: 7.5 MG
     Route: 048
     Dates: start: 20080716, end: 20080725
  13. AMLODIPINE BESYLATE [Concomitant]
     Indication: DRUG USE FOR UNKNOWN INDICATION
     Dosage: UNIT DOSE: 5 MG
     Route: 048
     Dates: start: 20080615, end: 20080725
  14. FENTANYL TRANSDERMAL SYSTEM [Concomitant]
     Indication: DRUG USE FOR UNKNOWN INDICATION
     Dosage: UNIT DOSE: 2.5 MG
     Route: 062
     Dates: start: 20080618, end: 20080618
  15. FENTANYL TRANSDERMAL SYSTEM [Concomitant]
     Dosage: UNIT DOSE: 2.5 MG
     Route: 062
     Dates: start: 20080715, end: 20080715
  16. FENTANYL TRANSDERMAL SYSTEM [Concomitant]
     Dosage: UNIT DOSE: 2.5 MG
     Route: 062
     Dates: start: 20080627, end: 20080627
  17. FENTANYL TRANSDERMAL SYSTEM [Concomitant]
     Dosage: UNIT DOSE: 2.5 MG
     Route: 062
     Dates: start: 20080718, end: 20080718
  18. FENTANYL TRANSDERMAL SYSTEM [Concomitant]
     Dosage: UNIT DOSE: 2.5 MG
     Route: 062
     Dates: start: 20080615, end: 20080615
  19. FENTANYL TRANSDERMAL SYSTEM [Concomitant]
     Dosage: UNIT DOSE: 2.5 MG
     Route: 062
     Dates: start: 20080624, end: 20080624
  20. FENTANYL TRANSDERMAL SYSTEM [Concomitant]
     Dosage: UNIT DOSE: 2.5 MG
     Route: 062
     Dates: start: 20080630, end: 20080630
  21. FENTANYL TRANSDERMAL SYSTEM [Concomitant]
     Dosage: UNIT DOSE: 2.5 MG
     Route: 062
     Dates: start: 20080621, end: 20080621
  22. FENTANYL TRANSDERMAL SYSTEM [Concomitant]
     Dosage: UNIT DOSE: 2.5 MG
     Route: 062
     Dates: start: 20080721, end: 20080721
  23. RINDERON-VG [Concomitant]
     Indication: DRUG USE FOR UNKNOWN INDICATION
     Dosage: UNIT DOSE: 10 G
     Route: 062
     Dates: start: 20080627, end: 20080627
  24. AZUNOL [Concomitant]
     Indication: DRUG USE FOR UNKNOWN INDICATION
     Route: 062
     Dates: start: 20080627, end: 20080627
  25. KENALOG [Concomitant]
     Indication: DRUG USE FOR UNKNOWN INDICATION
     Dosage: UNIT DOSE: 5 G
     Route: 062
     Dates: start: 20080622, end: 20080622
  26. KENALOG [Concomitant]
     Dosage: UNIT DOSE: 5 G
     Route: 062
     Dates: start: 20080630, end: 20080630
  27. ALLELOCK [Concomitant]
     Indication: RASH
     Dosage: UNIT DOSE: 5 MG
     Route: 048
     Dates: start: 20080630, end: 20080630
  28. WHITE PETROLATUM [Concomitant]
     Indication: PALMAR-PLANTAR ERYTHRODYSAESTHESIA SYNDROME
     Dosage: TOTAL DAILY DOSE: 50 G
     Route: 062
     Dates: start: 20080630, end: 20080630
  29. MYSER [Concomitant]
     Indication: PALMAR-PLANTAR ERYTHRODYSAESTHESIA SYNDROME
     Dosage: TOTAL DAILY DOSE: 50 G  UNIT DOSE: 10 G
     Route: 062
     Dates: start: 20080630, end: 20080630
  30. KENEI G [Concomitant]
     Indication: DRUG USE FOR UNKNOWN INDICATION
     Dosage: UNIT DOSE: 120 ML
     Route: 054
     Dates: start: 20080714, end: 20080714
  31. SOLDEM 3A [Concomitant]
     Indication: DRUG USE FOR UNKNOWN INDICATION
     Dosage: TOTAL DAILY DOSE: 2000 ML  UNIT DOSE: 500 ML
     Route: 041
     Dates: start: 20080715, end: 20080715
  32. KYOMINOTIN [Concomitant]
     Indication: HEPATIC FUNCTION ABNORMAL
     Dosage: TOTAL DAILY DOSE: 20 ML  UNIT DOSE: 20 ML
     Route: 065
     Dates: start: 20080724, end: 20080725

REACTIONS (6)
  - HEPATIC FUNCTION ABNORMAL [None]
  - PALMAR-PLANTAR ERYTHRODYSAESTHESIA SYNDROME [None]
  - PLATELET COUNT DECREASED [None]
  - RASH [None]
  - STOMATITIS [None]
  - WHITE BLOOD CELL COUNT DECREASED [None]
